FAERS Safety Report 12176946 (Version 1)
Quarter: 2016Q1

REPORT INFORMATION
  Report Type: Spontaneous
  Country: JP (occurrence: JP)
  Receive Date: 20160314
  Receipt Date: 20160314
  Transmission Date: 20160526
  Serious: Yes (Other)
  Sender: FDA-Public Use
  Company Number: JP-WATSON-2016-05196

PATIENT
  Age: 35 Year
  Sex: Male

DRUGS (1)
  1. LEVOFLOXACIN (UNKNOWN) [Suspect]
     Active Substance: LEVOFLOXACIN
     Indication: TYPHOID FEVER
     Dosage: 500 MG, QID
     Route: 048
     Dates: start: 20140827, end: 20140901

REACTIONS (1)
  - Infection reactivation [Recovered/Resolved]

NARRATIVE: CASE EVENT DATE: 20141011
